FAERS Safety Report 14658370 (Version 2)
Quarter: 2018Q3

REPORT INFORMATION
  Report Type: Spontaneous
  Country: US (occurrence: US)
  Receive Date: 20180320
  Receipt Date: 20180920
  Transmission Date: 20181010
  Serious: Yes (Death, Other)
  Sender: FDA-Public Use
  Company Number: US-CIPLA LTD.-2018US11449

PATIENT

DRUGS (2)
  1. TAXOL [Suspect]
     Active Substance: PACLITAXEL
     Indication: ANGIOSARCOMA
     Dosage: UNK
     Route: 065
  2. GEMCITABINE [Suspect]
     Active Substance: GEMCITABINE\GEMCITABINE HYDROCHLORIDE
     Indication: ANGIOSARCOMA
     Dosage: UNK
     Route: 065

REACTIONS (3)
  - Angiosarcoma metastatic [Fatal]
  - Haemoglobin decreased [Unknown]
  - Gastrointestinal haemorrhage [Unknown]
